FAERS Safety Report 8717077 (Version 6)
Quarter: 2013Q4

REPORT INFORMATION
  Report Type: Spontaneous
  Country: US (occurrence: US)
  Receive Date: 20120810
  Receipt Date: 20131015
  Transmission Date: 20140711
  Serious: Yes (Hospitalization, Other)
  Sender: FDA-Public Use
  Company Number: US-PFIZER INC-2012191386

PATIENT
  Age: 76 Year
  Sex: Female
  Weight: 79 kg

DRUGS (5)
  1. NEURONTIN [Suspect]
     Indication: NEUROPATHY PERIPHERAL
     Dosage: 600 MG, 4X/DAY
     Route: 048
     Dates: start: 1998
  2. NEURONTIN [Suspect]
     Indication: DIABETIC NEUROPATHY
     Dosage: 600 MG, 1X/DAY
     Route: 048
     Dates: start: 2013
  3. NEURONTIN [Suspect]
     Indication: NEURALGIA
     Dosage: UNK
  4. SKELAXIN [Suspect]
     Indication: MUSCLE SPASMS
     Dosage: 800 MG, 3X/DAY
     Route: 048
  5. SKELAXIN [Suspect]
     Indication: PAIN
     Dosage: UNK

REACTIONS (8)
  - Intentional drug misuse [Unknown]
  - Cardiac disorder [Unknown]
  - Spinal disorder [Unknown]
  - Gastrointestinal disorder [Unknown]
  - Body height decreased [Unknown]
  - Therapeutic response unexpected [Unknown]
  - Fatigue [Unknown]
  - Oropharyngeal pain [Unknown]
